FAERS Safety Report 6125276-4 (Version None)
Quarter: 2009Q1

REPORT INFORMATION
  Report Type: 
  Country: None (occurrence: None)
  Receive Date: 20090319
  Receipt Date: 20090319
  Transmission Date: 20090719
  Serious: Yes (Other)
  Sender: FDA-Public Use
  Company Number: None

PATIENT

DRUGS (1)
  1. MUCINEX DM [Suspect]
     Dates: start: 20090310, end: 20090312

REACTIONS (4)
  - ASTHENIA [None]
  - DEHYDRATION [None]
  - LOSS OF CONSCIOUSNESS [None]
  - SYNCOPE [None]
